FAERS Safety Report 16088693 (Version 2)
Quarter: 2019Q2

REPORT INFORMATION
  Report Type: Spontaneous
  Country: US (occurrence: US)
  Receive Date: 20190319
  Receipt Date: 20190605
  Transmission Date: 20190711
  Serious: No
  Sender: FDA-Public Use
  Company Number: US-PFIZER INC-2019116165

PATIENT
  Sex: Female

DRUGS (1)
  1. METHOTREXATE SODIUM. [Suspect]
     Active Substance: METHOTREXATE SODIUM
     Indication: COLITIS ULCERATIVE
     Dosage: 2.5 MG, 2X/DAY
     Route: 048
     Dates: end: 201810

REACTIONS (2)
  - Drug hypersensitivity [Recovered/Resolved]
  - Nausea [Recovered/Resolved]
